FAERS Safety Report 22153917 (Version 5)
Quarter: 2023Q2

REPORT INFORMATION
  Report Type: Spontaneous
  Country: US (occurrence: US)
  Receive Date: 20230330
  Receipt Date: 20230602
  Transmission Date: 20230721
  Serious: Yes (Hospitalization, Other)
  Sender: FDA-Public Use
  Company Number: US-SA-SAC20230329000776

PATIENT
  Age: 72 Year
  Sex: Male

DRUGS (6)
  1. ELOCTATE [Suspect]
     Active Substance: EFMOROCTOCOG ALFA
     Dosage: 4000 U (+/- 10%), BIW
     Route: 042
  2. ELOCTATE [Suspect]
     Active Substance: EFMOROCTOCOG ALFA
     Dosage: 4000 U (+/- 10%), BIW
     Route: 042
  3. ELOCTATE [Suspect]
     Active Substance: EFMOROCTOCOG ALFA
     Dosage: 4000 U (+/- 10%), PRN
     Route: 042
  4. ELOCTATE [Suspect]
     Active Substance: EFMOROCTOCOG ALFA
     Dosage: 4000 U (+/- 10%), PRN
     Route: 042
  5. INSULIN NOS [Suspect]
     Active Substance: INSULIN NOS
     Route: 065
  6. MAGNESIUM [Concomitant]
     Active Substance: MAGNESIUM
     Dosage: UNK
     Dates: start: 2023

REACTIONS (9)
  - Myocardial infarction [Unknown]
  - Eye haemorrhage [Unknown]
  - Blindness [Unknown]
  - Injury [Recovering/Resolving]
  - Muscle spasms [Recovering/Resolving]
  - Injection site bruising [Unknown]
  - Traumatic haemorrhage [Unknown]
  - Skin laceration [Unknown]
  - Back pain [Recovering/Resolving]

NARRATIVE: CASE EVENT DATE: 20230313
